FAERS Safety Report 10706764 (Version 1)
Quarter: 2015Q1

REPORT INFORMATION
  Report Type: Spontaneous
  Country: US (occurrence: None)
  Receive Date: 20150112
  Receipt Date: 20150112
  Transmission Date: 20150721
  Serious: Yes (Life-Threatening, Hospitalization, Disabling, Other)
  Sender: FDA-Public Use
  Company Number: None

PATIENT
  Age: 61 Year
  Sex: Male
  Weight: 99.79 kg

DRUGS (1)
  1. ENBREL [Suspect]
     Active Substance: ETANERCEPT
     Indication: RHEUMATOID ARTHRITIS
     Dosage: AUTOINJECT PEN , GIVEN INTO/UNDER THE SKIN
     Dates: start: 20140716, end: 20141031

REACTIONS (2)
  - Spinal fracture [None]
  - Seizure [None]

NARRATIVE: CASE EVENT DATE: 20141106
